FAERS Safety Report 4346797-0 (Version None)
Quarter: 2004Q1

REPORT INFORMATION
  Report Type: 
  Country: None (occurrence: None)
  Receive Date: 20040329
  Receipt Date: 20031215
  Transmission Date: 20041129
  Serious: No
  Sender: FDA-Public Use
  Company Number: USA031254647

PATIENT
  Age: 10 Year
  Sex: Female

DRUGS (3)
  1. STRATTERA [Suspect]
     Indication: ATTENTION DEFICIT/HYPERACTIVITY DISORDER
     Dosage: 18 MG/IN THE MORNING
     Dates: start: 20031201
  2. STRATTERA [Suspect]
     Indication: AUTISM
     Dosage: 18 MG/IN THE MORNING
     Dates: start: 20031201
  3. STRATTERA [Suspect]
     Indication: OBSESSIVE-COMPULSIVE DISORDER
     Dosage: 18 MG/IN THE MORNING
     Dates: start: 20031201

REACTIONS (2)
  - DRUG EFFECT DECREASED [None]
  - IMPULSE-CONTROL DISORDER [None]
